FAERS Safety Report 22394428 (Version 1)
Quarter: 2023Q2

REPORT INFORMATION
  Report Type: Report from Study
  Country: US (occurrence: US)
  Receive Date: 20230601
  Receipt Date: 20230601
  Transmission Date: 20230722
  Serious: Yes (Death, Other)
  Sender: FDA-Public Use
  Company Number: US-SA-SAC20230531000904

PATIENT
  Age: 79 Year
  Sex: Male

DRUGS (9)
  1. OXALIPLATIN [Suspect]
     Active Substance: OXALIPLATIN
     Indication: Oesophageal adenocarcinoma
     Dosage: UNK UNK, TOTAL, 1X
     Route: 065
     Dates: start: 20230516, end: 20230516
  2. TISLELIZUMAB [Suspect]
     Active Substance: TISLELIZUMAB
     Indication: Oesophageal adenocarcinoma
     Dosage: UNK UNK, TOTAL, 1X
     Dates: start: 20230516, end: 20230516
  3. FLUOROURACIL [Suspect]
     Active Substance: FLUOROURACIL
     Indication: Oesophageal adenocarcinoma
     Dosage: UNK UNK, TOTAL, 1X
     Dates: start: 20230516, end: 20230516
  4. LEUCOVORIN CALCIUM [Suspect]
     Active Substance: LEUCOVORIN CALCIUM
     Indication: Oesophageal adenocarcinoma
     Dosage: UNK UNK, TOTAL, 1X
     Dates: start: 20230516, end: 20230516
  5. FOLIC ACID [Concomitant]
     Active Substance: FOLIC ACID
     Dosage: UNK
  6. PROCHLORPERAZINE [Concomitant]
     Active Substance: PROCHLORPERAZINE
     Dosage: UNK
  7. SENOKOT [Concomitant]
     Active Substance: SENNOSIDES
     Dosage: UNK
  8. ONDANSETRON [Concomitant]
     Active Substance: ONDANSETRON
     Dosage: UNK
  9. POLYETHYLENE GLYCOL 3350 [Concomitant]
     Active Substance: POLYETHYLENE GLYCOL 3350
     Dosage: UNK

REACTIONS (7)
  - Cardiac arrest [Fatal]
  - Agonal respiration [Unknown]
  - Loss of consciousness [Unknown]
  - Pulseless electrical activity [Unknown]
  - Ventricular arrhythmia [Unknown]
  - Blood electrolytes increased [Unknown]
  - Troponin I increased [Unknown]

NARRATIVE: CASE EVENT DATE: 20230521
